FAERS Safety Report 18940090 (Version 1)
Quarter: 2021Q1

REPORT INFORMATION
  Report Type: Other
  Country: HR (occurrence: HR)
  Receive Date: 20210224
  Receipt Date: 20210224
  Transmission Date: 20210420
  Serious: Yes (Death, Hospitalization, Other)
  Sender: FDA-Public Use
  Company Number: HR-CELLTRION INC.-2021HR002177

PATIENT

DRUGS (4)
  1. DEXAMETHASONE. [Concomitant]
     Active Substance: DEXAMETHASONE
     Indication: PRODUCT USED FOR UNKNOWN INDICATION
     Dosage: 20 MG FOR 4 DAYS, THEN PAUSE FOR 4 DAYS
  2. RITUXIMAB (UNKNOWN) [Suspect]
     Active Substance: RITUXIMAB
     Indication: CHRONIC LYMPHOCYTIC LEUKAEMIA
     Dosage: UNK
     Route: 065
     Dates: start: 20200323, end: 2020
  3. VENCLYXTO [Suspect]
     Active Substance: VENETOCLAX
     Indication: CHRONIC LYMPHOCYTIC LEUKAEMIA
     Dosage: UNK, RAMP?UP
     Route: 048
     Dates: start: 20200323, end: 2020
  4. VENCLYXTO [Suspect]
     Active Substance: VENETOCLAX
     Dosage: UNK
     Route: 048
     Dates: start: 2020, end: 20200727

REACTIONS (14)
  - Richter^s syndrome [Fatal]
  - Disease progression [Fatal]
  - Splenomegaly [Fatal]
  - Anaemia [Fatal]
  - Asthenia [Fatal]
  - Lymphocytosis [Fatal]
  - Death [Fatal]
  - Lymphadenopathy [Fatal]
  - Neutropenia [Fatal]
  - Pyrexia [Fatal]
  - Peripheral swelling [Fatal]
  - Decreased appetite [Fatal]
  - Oedema peripheral [Fatal]
  - Dyspnoea exertional [Fatal]

NARRATIVE: CASE EVENT DATE: 2020
